FAERS Safety Report 8236908-9 (Version None)
Quarter: 2012Q1

REPORT INFORMATION
  Report Type: 
  Country: None (occurrence: None)
  Receive Date: 20120327
  Receipt Date: 20120323
  Transmission Date: 20120608
  Serious: No
  Sender: FDA-Public Use
  Company Number: US-BAYER-2012-029138

PATIENT
  Age: 73 Year
  Sex: Female

DRUGS (1)
  1. CIPROFLOXACIN HCL [Suspect]
     Indication: URINARY TRACT INFECTION
     Dosage: 250 MG, UNK
     Route: 048
     Dates: start: 20120320

REACTIONS (2)
  - FEELING ABNORMAL [None]
  - FEELING OF RELAXATION [None]
